FAERS Safety Report 9726269 (Version 3)
Quarter: 2013Q4

REPORT INFORMATION
  Report Type: Spontaneous
  Country: DE (occurrence: DE)
  Receive Date: 20131203
  Receipt Date: 20131220
  Transmission Date: 20140711
  Serious: Yes (Hospitalization, Other)
  Sender: FDA-Public Use
  Company Number: DE-JNJFOC-20130712050

PATIENT
  Age: 77 Year
  Sex: Female
  Weight: 67 kg

DRUGS (6)
  1. XARELTO [Suspect]
     Indication: CEREBROVASCULAR ACCIDENT PROPHYLAXIS
     Route: 048
     Dates: start: 20130430, end: 20130709
  2. XARELTO [Suspect]
     Indication: ATRIAL FIBRILLATION
     Route: 048
     Dates: start: 20130430, end: 20130709
  3. BISOPROLOL [Concomitant]
     Indication: TACHYCARDIA
     Route: 065
     Dates: start: 20130507
  4. RAMIPRIL [Concomitant]
     Indication: HYPERTENSION
     Route: 065
     Dates: start: 20121017
  5. HCT [Concomitant]
     Route: 065
     Dates: start: 20121017
  6. JANUMET [Concomitant]
     Indication: DIABETES MELLITUS
     Route: 065
     Dates: start: 20121017

REACTIONS (3)
  - Small intestinal haemorrhage [Recovered/Resolved]
  - Gastrointestinal angiodysplasia [Unknown]
  - Faeces discoloured [Recovered/Resolved]
